FAERS Safety Report 7117823-0 (Version None)
Quarter: 2010Q4

REPORT INFORMATION
  Report Type: 
  Country: None (occurrence: None)
  Receive Date: 20101118
  Receipt Date: 20101118
  Transmission Date: 20110411
  Serious: Yes (Other)
  Sender: FDA-Public Use
  Company Number: None

PATIENT
  Sex: Female

DRUGS (2)
  1. TOPIRAMATE [Suspect]
     Indication: EPILEPSY
     Dosage: 100MG TAB 1 TAB TWICE DAILY PO
     Route: 048
  2. TOPIRAMATE [Suspect]
     Indication: HEADACHE
     Dosage: 100MG TAB 1 TAB TWICE DAILY PO
     Route: 048

REACTIONS (2)
  - CONVULSION [None]
  - HEADACHE [None]
